FAERS Safety Report 5083989-X (Version None)
Quarter: 2006Q3

REPORT INFORMATION
  Report Type: 
  Country: None (occurrence: None)
  Receive Date: 20060816
  Receipt Date: 20060803
  Transmission Date: 20061208
  Serious: Yes (Death)
  Sender: FDA-Public Use
  Company Number: 2006BH012640

PATIENT
  Age: 1 Week
  Sex: Female

DRUGS (1)
  1. HEPARIN SODIUM [Suspect]
     Indication: VENTRICULAR HYPOPLASIA

REACTIONS (4)
  - HEPARIN-INDUCED THROMBOCYTOPENIA [None]
  - NEONATAL DISORDER [None]
  - PULMONARY EMBOLISM [None]
  - THROMBOSIS IN DEVICE [None]
